FAERS Safety Report 9747600 (Version 1)
Quarter: 2013Q4

REPORT INFORMATION
  Report Type: Spontaneous
  Country: US (occurrence: None)
  Receive Date: 20131211
  Receipt Date: 20131211
  Transmission Date: 20140711
  Serious: No
  Sender: FDA-Public Use
  Company Number: None

PATIENT
  Age: 26 Year
  Sex: Female
  Weight: 72.58 kg

DRUGS (1)
  1. NUVA RING [Suspect]
     Indication: CONTRACEPTION
     Dosage: ONE RING, 3 WEEKS, VAGINAL
     Dates: start: 20131119, end: 20131210

REACTIONS (3)
  - Headache [None]
  - Nausea [None]
  - Vomiting [None]
